FAERS Safety Report 7157920-7 (Version None)
Quarter: 2010Q4

REPORT INFORMATION
  Report Type: 
  Country: None (occurrence: None)
  Receive Date: 20101130
  Receipt Date: 20101115
  Transmission Date: 20110411
  Serious: Yes (Life-Threatening, Hospitalization)
  Sender: FDA-Public Use
  Company Number: OU-10-036

PATIENT
  Age: 5 Year
  Sex: Male

DRUGS (1)
  1. CEFTRIAXONE [Suspect]
     Indication: SEPSIS
     Dosage: X 1; IV
     Route: 042

REACTIONS (14)
  - ACUTE CHEST SYNDROME [None]
  - ANAPHYLACTIC REACTION [None]
  - BACK PAIN [None]
  - CONVULSION [None]
  - EYE SWELLING [None]
  - HAEMOGLOBIN DECREASED [None]
  - HYPERTENSION [None]
  - LIVER DISORDER [None]
  - LUNG INFILTRATION [None]
  - MULTI-ORGAN FAILURE [None]
  - PERITONEAL DIALYSIS [None]
  - PLATELET COUNT DECREASED [None]
  - PYREXIA [None]
  - RENAL FAILURE ACUTE [None]
